FAERS Safety Report 25233087 (Version 1)
Quarter: 2025Q2

REPORT INFORMATION
  Report Type: Spontaneous
  Country: US (occurrence: US)
  Receive Date: 20250424
  Receipt Date: 20250424
  Transmission Date: 20250717
  Serious: Yes (Death, Hospitalization, Other)
  Sender: ALEMBIC
  Company Number: US-ALEMBIC PHARMACUETICALS LIMITED-2025SCAL000373

PATIENT

DRUGS (3)
  1. FLUOROURACIL [Suspect]
     Active Substance: FLUOROURACIL
     Indication: Colorectal adenocarcinoma
     Route: 065
  2. LEUCOVORIN [Suspect]
     Active Substance: LEUCOVORIN\LEUCOVORIN CALCIUM
     Indication: Colorectal adenocarcinoma
     Route: 065
  3. OXALIPLATIN [Suspect]
     Active Substance: OXALIPLATIN
     Indication: Colorectal adenocarcinoma
     Route: 065

REACTIONS (12)
  - Toxicity to various agents [Fatal]
  - Neutropenia [Fatal]
  - Oesophageal candidiasis [Fatal]
  - Necrotising fasciitis [Fatal]
  - Septic shock [Fatal]
  - Mucosal inflammation [Fatal]
  - Symmetrical drug-related intertriginous and flexural exanthema [Fatal]
  - Rash erythematous [Fatal]
  - Odynophagia [Fatal]
  - Mouth swelling [Fatal]
  - Palmar-plantar erythrodysaesthesia syndrome [Fatal]
  - Diarrhoea [Fatal]
